FAERS Safety Report 14454472 (Version 1)
Quarter: 2018Q1

REPORT INFORMATION
  Report Type: Spontaneous
  Country: US (occurrence: US)
  Receive Date: 20180128
  Receipt Date: 20180128
  Transmission Date: 20180509
  Serious: Yes (Disabling)
  Sender: FDA-Public Use
  Company Number: None

PATIENT
  Age: 62 Year
  Sex: Female
  Weight: 53.1 kg

DRUGS (5)
  1. TRIAMCINOLONE ACETONIDE OINTMENT 0.1 % [Suspect]
     Active Substance: TRIAMCINOLONE ACETONIDE
     Indication: ECZEMA
     Dates: start: 20150501, end: 20170701
  2. DESOXIMETASONE OINTMENTS [Suspect]
     Active Substance: DESOXIMETASONE
     Indication: ECZEMA
  3. HYDROXYZINE [Concomitant]
     Active Substance: HYDROXYZINE HYDROCHLORIDE
  4. GABAPENTIN. [Concomitant]
     Active Substance: GABAPENTIN
  5. ZOLPIDEM [Concomitant]
     Active Substance: ZOLPIDEM\ZOLPIDEM TARTRATE

REACTIONS (7)
  - Erythema [None]
  - Drug dependence [None]
  - Rash [None]
  - Quality of life decreased [None]
  - Pruritus [None]
  - Burning sensation [None]
  - Sleep disorder [None]

NARRATIVE: CASE EVENT DATE: 20170701
